FAERS Safety Report 6753721-X (Version None)
Quarter: 2010Q2

REPORT INFORMATION
  Report Type: 
  Country: None (occurrence: None)
  Receive Date: 20100603
  Receipt Date: 20100524
  Transmission Date: 20101027
  Serious: Yes (Other)
  Sender: FDA-Public Use
  Company Number: AU-BRISTOL-MYERS SQUIBB COMPANY-15129497

PATIENT
  Age: 8 Year
  Sex: Female

DRUGS (2)
  1. AMPHOTERICIN B [Suspect]
     Indication: CUTANEOUS LEISHMANIASIS
     Dosage: CHANGED TO LIPOSOMAL AMPHOTERICIN ON DAY 7
     Route: 042
  2. FLUCONAZOLE [Suspect]
     Indication: CUTANEOUS LEISHMANIASIS
     Dosage: 2MG/KG DAILY FOR 8 MONTHS
     Route: 048

REACTIONS (5)
  - DECREASED APPETITE [None]
  - HYPERPHOSPHATAEMIA [None]
  - HYPOMAGNESAEMIA [None]
  - PYREXIA [None]
  - RENAL FAILURE ACUTE [None]
